FAERS Safety Report 11379653 (Version 3)
Quarter: 2015Q4

REPORT INFORMATION
  Report Type: Spontaneous
  Country: US (occurrence: US)
  Receive Date: 20150814
  Receipt Date: 20151223
  Transmission Date: 20160304
  Serious: Yes (Hospitalization)
  Sender: FDA-Public Use
  Company Number: US-ROCHE-1621519

PATIENT
  Age: 71 Year
  Sex: Male
  Weight: 87.17 kg

DRUGS (2)
  1. ESBRIET [Suspect]
     Active Substance: PIRFENIDONE
     Dosage: 3 CAPSULES DAILY AND 2 CAPSULES 2 TIMES A DAY
     Route: 048
     Dates: start: 20150312
  2. ESBRIET [Suspect]
     Active Substance: PIRFENIDONE
     Indication: IDIOPATHIC PULMONARY FIBROSIS
     Route: 048
     Dates: start: 20150312

REACTIONS (6)
  - Abdominal distension [Unknown]
  - Dizziness [Unknown]
  - Hypoxia [Unknown]
  - Nausea [Unknown]
  - Flatulence [Unknown]
  - Gastrointestinal viral infection [Unknown]

NARRATIVE: CASE EVENT DATE: 20150729
